FAERS Safety Report 10094146 (Version 1)
Quarter: 2014Q2

REPORT INFORMATION
  Report Type: Report from Study
  Country: US (occurrence: US)
  Receive Date: 20140422
  Receipt Date: 20140422
  Transmission Date: 20141212
  Serious: Yes (Hospitalization)
  Sender: FDA-Public Use
  Company Number: US-BRISTOL-MYERS SQUIBB COMPANY-20626693

PATIENT
  Age: 54 Year
  Sex: Male
  Weight: 83.5 kg

DRUGS (1)
  1. IPILIMUMAB [Suspect]
     Indication: MALIGNANT MELANOMA
     Dosage: TOTAL DOSE 862MG?RECENT DOSE 11MAR14
     Route: 042
     Dates: start: 20140218

REACTIONS (1)
  - Syncope [Recovered/Resolved]
